FAERS Safety Report 12966020 (Version 2)
Quarter: 2016Q4

REPORT INFORMATION
  Report Type: Spontaneous
  Country: GB (occurrence: GB)
  Receive Date: 20161122
  Receipt Date: 20161213
  Transmission Date: 20170207
  Serious: Yes (Other)
  Sender: FDA-Public Use
  Company Number: GB-PFIZER INC-2016535234

PATIENT
  Sex: Female
  Weight: 3.18 kg

DRUGS (3)
  1. PREGABALIN. [Suspect]
     Active Substance: PREGABALIN
     Dosage: UNK
     Route: 064
     Dates: start: 2016, end: 20161030
  2. DIAZEPAM. [Suspect]
     Active Substance: DIAZEPAM
     Dosage: 15 MG, 1X/DAY
     Route: 064
     Dates: start: 2016, end: 2016
  3. SUBUTEX [Suspect]
     Active Substance: BUPRENORPHINE HYDROCHLORIDE
     Indication: DRUG DEPENDENCE
     Dosage: 6 MG, 1X/DAY
     Route: 064
     Dates: start: 2016, end: 20161030

REACTIONS (2)
  - Maternal exposure during pregnancy [Recovered/Resolved]
  - Drug withdrawal syndrome neonatal [Recovered/Resolved]

NARRATIVE: CASE EVENT DATE: 2016
